FAERS Safety Report 17664339 (Version 4)
Quarter: 2020Q2

REPORT INFORMATION
  Report Type: Spontaneous
  Country: US (occurrence: US)
  Receive Date: 20200414
  Receipt Date: 20200518
  Transmission Date: 20200713
  Serious: Yes (Other)
  Sender: FDA-Public Use
  Company Number: NVSC2020US099330

PATIENT
  Sex: Female
  Weight: 75.74 kg

DRUGS (1)
  1. TYKERB [Suspect]
     Active Substance: LAPATINIB DITOSYLATE
     Indication: BREAST CANCER FEMALE
     Dosage: 1250 MG, QD
     Route: 048
     Dates: start: 20200120

REACTIONS (3)
  - Weight decreased [Unknown]
  - Weight increased [Unknown]
  - Mood altered [Unknown]
